FAERS Safety Report 10263534 (Version 1)
Quarter: 2014Q2

REPORT INFORMATION
  Report Type: Spontaneous
  Country: US (occurrence: US)
  Receive Date: 20140626
  Receipt Date: 20140626
  Transmission Date: 20141212
  Serious: No
  Sender: FDA-Public Use
  Company Number: US-GILEAD-2014-0106808

PATIENT
  Sex: Female

DRUGS (3)
  1. LETAIRIS [Suspect]
     Indication: PRODUCT USED FOR UNKNOWN INDICATION
     Dosage: 5 MG, QD
     Route: 065
     Dates: start: 20140508
  2. LETAIRIS [Suspect]
     Dosage: 2.5 MG, QD
     Route: 065
     Dates: start: 2014, end: 2014
  3. LETAIRIS [Suspect]
     Dosage: 5 MG, QD
     Route: 065
     Dates: start: 2014

REACTIONS (5)
  - Somnolence [Unknown]
  - Swelling [Unknown]
  - Constipation [Unknown]
  - Dizziness [Unknown]
  - Anaemia [Unknown]
